FAERS Safety Report 25686260 (Version 1)
Quarter: 2025Q3

REPORT INFORMATION
  Report Type: Spontaneous
  Country: US (occurrence: US)
  Receive Date: 20250815
  Receipt Date: 20250815
  Transmission Date: 20251021
  Serious: Yes (Other)
  Sender: NOVO NORDISK
  Company Number: US-NOVOPROD-1500142

PATIENT
  Age: 59 Year
  Sex: Male

DRUGS (1)
  1. NOVOLIN N [Suspect]
     Active Substance: INSULIN HUMAN
     Indication: Type 2 diabetes mellitus
     Dates: start: 2018

REACTIONS (10)
  - Fall [Unknown]
  - Upper limb fracture [Unknown]
  - Emergency care [Unknown]
  - Vein rupture [Unknown]
  - Blood glucose increased [Unknown]
  - Malaise [Unknown]
  - Nausea [Unknown]
  - Bone disorder [Unknown]
  - Drug ineffective [Not Recovered/Not Resolved]
  - Product storage error [Unknown]

NARRATIVE: CASE EVENT DATE: 20250806
